FAERS Safety Report 20586190 (Version 4)
Quarter: 2022Q2

REPORT INFORMATION
  Report Type: Other
  Country: US (occurrence: None)
  Receive Date: 20220313
  Receipt Date: 20220621
  Transmission Date: 20220720
  Serious: Yes (Death, Hospitalization, Other)
  Sender: FDA-Public Use
  Company Number: US-ROCHE-3042143

PATIENT
  Sex: Male
  Weight: 81.720 kg

DRUGS (17)
  1. OCREVUS [Suspect]
     Active Substance: OCRELIZUMAB
     Indication: Relapsing-remitting multiple sclerosis
     Dosage: YES?SUBSEQUENT DOSE 600 MG EVERY 6 MONTHS?DOT: 27-JUL-2021, 28-SEP-2020, 20-MAR-2020, 13-SEP-2019, 3
     Route: 042
     Dates: start: 20190813, end: 202107
  2. ZOLPIDEM [Concomitant]
     Active Substance: ZOLPIDEM TARTRATE
     Route: 048
  3. ACIDOPHILUS [Concomitant]
     Active Substance: LACTOBACILLUS ACIDOPHILUS
     Indication: Urinary tract infection
     Dosage: UNKNOWN
     Route: 048
  4. BUPROPION [Concomitant]
     Active Substance: BUPROPION
     Route: 048
  5. GLIPIZIDE [Concomitant]
     Active Substance: GLIPIZIDE
     Indication: Diabetes mellitus
  6. VITAMIN C [Concomitant]
     Active Substance: ASCORBIC ACID
     Indication: Urinary tract infection
     Route: 048
  7. ATORVASTATIN CALCIUM [Concomitant]
     Active Substance: ATORVASTATIN CALCIUM
     Indication: Blood cholesterol
     Route: 048
  8. INSULIN GLARGINE [Concomitant]
     Active Substance: INSULIN GLARGINE
     Indication: Diabetes mellitus
  9. LISINOPRIL [Concomitant]
     Active Substance: LISINOPRIL
  10. MELATONIN [Concomitant]
     Active Substance: MELATONIN
     Dosage: TO SLEEP
     Route: 048
  11. OXYBUTYNIN CHLORIDE [Concomitant]
     Active Substance: OXYBUTYNIN CHLORIDE
     Route: 048
  12. TAMSULOSIN [Concomitant]
     Active Substance: TAMSULOSIN
     Route: 048
  13. MODERNA COVID-19 VACCINE [Concomitant]
     Active Substance: ELASOMERAN
     Indication: COVID-19
     Dosage: 2ND DOSE ON 10/AAPR/2021
     Dates: start: 20210313
  14. MODERNA COVID-19 VACCINE [Concomitant]
     Active Substance: ELASOMERAN
     Dates: start: 202104
  15. SIMVASTATIN [Concomitant]
     Active Substance: SIMVASTATIN
  16. ASPIRIN [Concomitant]
     Active Substance: ASPIRIN
  17. AMLODIPINE BESYLATE [Concomitant]
     Active Substance: AMLODIPINE BESYLATE

REACTIONS (20)
  - Silent myocardial infarction [Recovered/Resolved]
  - Urinary tract infection [Recovered/Resolved]
  - COVID-19 [Fatal]
  - Sepsis [Recovered/Resolved]
  - Fall [Unknown]
  - Pyrexia [Recovered/Resolved]
  - Asthenia [Recovered/Resolved with Sequelae]
  - Vomiting [Recovered/Resolved]
  - Diarrhoea [Recovered/Resolved]
  - Dysstasia [Unknown]
  - Anal incontinence [Not Recovered/Not Resolved]
  - Dizziness [Unknown]
  - Decubitus ulcer [Unknown]
  - Cardiopulmonary failure [Fatal]
  - Infection [Not Recovered/Not Resolved]
  - Wound [Not Recovered/Not Resolved]
  - White blood cell count increased [Not Recovered/Not Resolved]
  - Clostridium difficile colitis [Recovered/Resolved]
  - Hypotension [Fatal]
  - Weight decreased [Not Recovered/Not Resolved]

NARRATIVE: CASE EVENT DATE: 20200101
